FAERS Safety Report 16571661 (Version 1)
Quarter: 2019Q3

REPORT INFORMATION
  Report Type: Spontaneous
  Country: US (occurrence: US)
  Receive Date: 20190531
  Receipt Date: 20190531
  Transmission Date: 20191004
  Serious: Yes (Death, Hospitalization)
  Sender: FDA-Public Use
  Company Number: None

PATIENT
  Sex: Female
  Weight: 65.5 kg

DRUGS (1)
  1. PALBOCICLIB (PD-0332991) (772256) [Suspect]
     Active Substance: PALBOCICLIB

REACTIONS (3)
  - Pneumonia [None]
  - Failure to thrive [None]
  - Pleural effusion [None]

NARRATIVE: CASE EVENT DATE: 20190506
